FAERS Safety Report 8036710-7 (Version None)
Quarter: 2012Q1

REPORT INFORMATION
  Report Type: 
  Country: None (occurrence: None)
  Receive Date: 20120111
  Receipt Date: 20120109
  Transmission Date: 20120608
  Serious: Yes (Death, Hospitalization)
  Sender: FDA-Public Use
  Company Number: DE-ROCHE-698146

PATIENT
  Sex: Female
  Weight: 50 kg

DRUGS (2)
  1. COPEGUS [Suspect]
     Indication: HEPATITIS C
     Route: 048
     Dates: start: 20090206, end: 20090721
  2. PEGINTERFERON ALFA-2A [Suspect]
     Indication: HEPATITIS C
     Route: 058
     Dates: start: 20090206, end: 20090721

REACTIONS (3)
  - CACHEXIA [None]
  - CARDIOPULMONARY FAILURE [None]
  - DECREASED APPETITE [None]
